FAERS Safety Report 5645953-9 (Version None)
Quarter: 2008Q1

REPORT INFORMATION
  Report Type: 
  Country: None (occurrence: None)
  Receive Date: 20080229
  Receipt Date: 20080218
  Transmission Date: 20080703
  Serious: Yes (Hospitalization)
  Sender: FDA-Public Use
  Company Number: FR-GENENTECH-256638

PATIENT
  Age: 50 Year
  Sex: Female

DRUGS (3)
  1. MABTHERA [Suspect]
     Indication: RHEUMATOID ARTHRITIS
     Dosage: 1000 MG, UNK
     Route: 042
  2. POLARAMINE [Concomitant]
     Indication: PREMEDICATION
  3. CORTICOSTEROIDS (UNK INGREDIENTS) [Concomitant]
     Indication: PREMEDICATION

REACTIONS (4)
  - DEPRESSED LEVEL OF CONSCIOUSNESS [None]
  - ERYTHEMA [None]
  - SOMNOLENCE [None]
  - TREMOR [None]
